FAERS Safety Report 7765297-9 (Version None)
Quarter: 2011Q3

REPORT INFORMATION
  Report Type: 
  Country: None (occurrence: None)
  Receive Date: 20110919
  Receipt Date: 20101123
  Transmission Date: 20111222
  Serious: Yes (Other)
  Sender: FDA-Public Use
  Company Number: WAES 1011USA03231

PATIENT
  Age: 43 Year
  Sex: Female

DRUGS (1)
  1. MAXALT-MLT [Suspect]
     Indication: MIGRAINE
     Dosage: UNK/1X/PO
     Route: 048
     Dates: start: 20100721

REACTIONS (4)
  - HYPERHIDROSIS [None]
  - PALPITATIONS [None]
  - TREMOR [None]
  - DRY MOUTH [None]
